FAERS Safety Report 24342485 (Version 1)
Quarter: 2024Q3

REPORT INFORMATION
  Report Type: Report from Study
  Country: DE (occurrence: DE)
  Receive Date: 20240920
  Receipt Date: 20240920
  Transmission Date: 20241016
  Serious: Yes (Other)
  Sender: NOVARTIS
  Company Number: DE-002147023-NVSC2024DE184754

PATIENT
  Age: 62 Year
  Sex: Female
  Weight: 95 kg

DRUGS (7)
  1. COSENTYX [Suspect]
     Active Substance: SECUKINUMAB
     Indication: Hidradenitis
     Dosage: 300 MG, ONCE/SINGLE (2 X 150 MG)
     Route: 058
     Dates: start: 20240318, end: 20240318
  2. COSENTYX [Suspect]
     Active Substance: SECUKINUMAB
     Dosage: 300 MG, ONCE/SINGLE (2 X 150 MG)
     Route: 058
     Dates: start: 20240325, end: 20240325
  3. COSENTYX [Suspect]
     Active Substance: SECUKINUMAB
     Dosage: 300 MG, ONCE/SINGLE (2 X 150 MG)
     Route: 058
     Dates: start: 20240401, end: 20240401
  4. COSENTYX [Suspect]
     Active Substance: SECUKINUMAB
     Dosage: 300 MG, ONCE/SINGLE (2 X 150 MG)
     Route: 058
     Dates: start: 20240408, end: 20240408
  5. COSENTYX [Suspect]
     Active Substance: SECUKINUMAB
     Dosage: 300 MG, ONCE/SINGLE (2 X 150 MG)
     Route: 058
     Dates: start: 20240415, end: 20240415
  6. COSENTYX [Suspect]
     Active Substance: SECUKINUMAB
     Dosage: 300 MG, ONCE/SINGLE (2 X 150 MG)
     Route: 058
     Dates: start: 20240515, end: 20240515
  7. COSENTYX [Suspect]
     Active Substance: SECUKINUMAB
     Dosage: UNK
     Route: 065
     Dates: start: 20240809, end: 20240809

REACTIONS (1)
  - Hepatic enzyme increased [Not Recovered/Not Resolved]

NARRATIVE: CASE EVENT DATE: 20240904
